FAERS Safety Report 16128198 (Version 1)
Quarter: 2019Q1

REPORT INFORMATION
  Report Type: Spontaneous
  Country: US (occurrence: US)
  Receive Date: 20190225
  Receipt Date: 20190225
  Transmission Date: 20190418
  Serious: Yes (Other)
  Sender: FDA-Public Use
  Company Number: None

PATIENT
  Age: 45 Year
  Sex: Female
  Weight: 112.94 kg

DRUGS (1)
  1. ELIQUIS [Suspect]
     Active Substance: APIXABAN
     Indication: PULMONARY EMBOLISM
     Route: 048
     Dates: start: 20181223, end: 20190218

REACTIONS (7)
  - Feeling abnormal [None]
  - Rash [None]
  - Headache [None]
  - Arthralgia [None]
  - Tachyphrenia [None]
  - Mania [None]
  - Initial insomnia [None]

NARRATIVE: CASE EVENT DATE: 20190207
